FAERS Safety Report 8196588-8 (Version None)
Quarter: 2012Q1

REPORT INFORMATION
  Report Type: 
  Country: None (occurrence: None)
  Receive Date: 20120229
  Receipt Date: 20101117
  Transmission Date: 20120608
  Serious: Yes (Hospitalization)
  Sender: FDA-Public Use
  Company Number: 008863

PATIENT
  Sex: Male

DRUGS (1)
  1. SAMSCA [Suspect]
     Indication: HYPONATRAEMIA
     Dosage: 15 MG, SINGLE, ORAL 7.5 MG, DAILY DOSE, ORAL
     Route: 048

REACTIONS (2)
  - HYPONATRAEMIA [None]
  - WRONG TECHNIQUE IN DRUG USAGE PROCESS [None]
